FAERS Safety Report 24585107 (Version 1)
Quarter: 2024Q4

REPORT INFORMATION
  Report Type: Spontaneous
  Country: IT (occurrence: IT)
  Receive Date: 20241106
  Receipt Date: 20241106
  Transmission Date: 20250115
  Serious: Yes (Life-Threatening, Hospitalization, Other)
  Sender: SANDOZ
  Company Number: IT-SA-2023SA159025

PATIENT
  Age: 8 Year
  Sex: Female

DRUGS (15)
  1. ALEMTUZUMAB [Suspect]
     Active Substance: ALEMTUZUMAB
     Indication: Prophylaxis against graft versus host disease
     Dosage: 0.2 MG/KG, QD, FROM DAY -9 TO -6
     Route: 065
  2. ALEMTUZUMAB [Suspect]
     Active Substance: ALEMTUZUMAB
     Dosage: 375 MG/M2 ON DAY-1
     Route: 065
  3. CYCLOPHOSPHAMIDE [Suspect]
     Active Substance: CYCLOPHOSPHAMIDE
     Indication: Bone marrow conditioning regimen
     Dosage: 1200 MG/M2, FROM DAY -6 TO -3
     Route: 065
  4. CYCLOSPORINE [Suspect]
     Active Substance: CYCLOSPORINE
     Indication: Prophylaxis against graft versus host disease
     Dosage: 3 MG/KG IN 2 DAILY DOSES
     Route: 042
  5. CYCLOSPORINE [Suspect]
     Active Substance: CYCLOSPORINE
     Dosage: 3 MG/KG IN 2 DAILY DOSES
     Route: 042
  6. FLUDARABINE PHOSPHATE [Suspect]
     Active Substance: FLUDARABINE PHOSPHATE
     Indication: Bone marrow conditioning regimen
     Dosage: 120 MG/M2, QD, (FROM DAY -6 TO -3)
     Route: 065
  7. FLUDARABINE PHOSPHATE [Suspect]
     Active Substance: FLUDARABINE PHOSPHATE
     Dosage: 160 MG/M2, (FROM DAY -6 TO -3)
     Route: 065
  8. MYCOPHENOLATE MOFETIL [Suspect]
     Active Substance: MYCOPHENOLATE MOFETIL
     Indication: Prophylaxis against graft versus host disease
     Dosage: 30 MG/KG, QD, FROM DAY 0 TO +30
     Route: 065
  9. BUDESONIDE [Concomitant]
     Active Substance: BUDESONIDE
     Indication: Acute graft versus host disease in skin
     Dosage: UNK UNK, QD
     Route: 048
  10. BUDESONIDE [Concomitant]
     Active Substance: BUDESONIDE
     Indication: Graft versus host disease in gastrointestinal tract
  11. DANAZOL [Concomitant]
     Active Substance: DANAZOL
     Indication: Product used for unknown indication
     Dosage: UNK
     Route: 065
  12. ETANERCEPT [Concomitant]
     Active Substance: ETANERCEPT
     Indication: Acute graft versus host disease in skin
     Dosage: 0.4 MG/KG, BIW
     Route: 058
  13. ETANERCEPT [Concomitant]
     Active Substance: ETANERCEPT
     Indication: Graft versus host disease in gastrointestinal tract
  14. IMATINIB [Concomitant]
     Active Substance: IMATINIB
     Indication: Acute graft versus host disease in skin
     Dosage: UNK
     Route: 065
  15. IMATINIB [Concomitant]
     Active Substance: IMATINIB
     Indication: Graft versus host disease in gastrointestinal tract

REACTIONS (6)
  - Viral haemorrhagic cystitis [Recovered/Resolved]
  - BK virus infection [Recovered/Resolved]
  - Stomatitis [Unknown]
  - Graft versus host disease [Unknown]
  - Cytomegalovirus infection reactivation [Unknown]
  - Off label use [Unknown]
